FAERS Safety Report 7244236-3 (Version None)
Quarter: 2011Q1

REPORT INFORMATION
  Report Type: 
  Country: None (occurrence: None)
  Receive Date: 20110125
  Receipt Date: 20101129
  Transmission Date: 20110831
  Serious: Yes (Other)
  Sender: FDA-Public Use
  Company Number: GB-BAYER-201043604GPV

PATIENT
  Sex: Female

DRUGS (1)
  1. BETAFERON [Suspect]
     Indication: MULTIPLE SCLEROSIS
     Dosage: 250 A?G, QOD
     Route: 058
     Dates: start: 20081101

REACTIONS (7)
  - MULTIPLE SCLEROSIS RELAPSE [None]
  - INJECTION SITE PAIN [None]
  - FEELING ABNORMAL [None]
  - PAIN IN EXTREMITY [None]
  - HEADACHE [None]
  - ABASIA [None]
  - MOBILITY DECREASED [None]
